FAERS Safety Report 4276912-9 (Version None)
Quarter: 2004Q1

REPORT INFORMATION
  Report Type: 
  Country: None (occurrence: None)
  Receive Date: 20040120
  Receipt Date: 20040113
  Transmission Date: 20041129
  Serious: No
  Sender: FDA-Public Use
  Company Number: 2003UW15611

PATIENT
  Age: 24 Year
  Sex: Male
  Weight: 68.0396 kg

DRUGS (4)
  1. SEROQUEL [Suspect]
     Dosage: 50 MG HS PO
     Route: 048
     Dates: start: 20031114, end: 20031125
  2. EFFEXOR XR [Concomitant]
  3. ROGAINE 5 [Concomitant]
  4. AMBIEN [Concomitant]

REACTIONS (2)
  - MYDRIASIS [None]
  - SINUS TACHYCARDIA [None]
